FAERS Safety Report 9336416 (Version 2)
Quarter: 2013Q3

REPORT INFORMATION
  Report Type: Spontaneous
  Country: BR (occurrence: BR)
  Receive Date: 20130607
  Receipt Date: 20130726
  Transmission Date: 20140515
  Serious: Yes (Other)
  Sender: FDA-Public Use
  Company Number: BR-ELI_LILLY_AND_COMPANY-BR201305008238

PATIENT
  Sex: Female
  Weight: 65 kg

DRUGS (4)
  1. HUMULIN NPH [Suspect]
     Indication: DIABETES MELLITUS
     Dosage: 30 IU, EACH MORNING
     Route: 058
     Dates: start: 2000
  2. HUMULIN NPH [Suspect]
     Dosage: UNK, QD
     Route: 058
     Dates: start: 2000
  3. GLIFAGE [Concomitant]
     Dosage: 500 MG, BID
     Route: 065
  4. SINVASTATINA [Concomitant]
     Indication: BLOOD CHOLESTEROL
     Dosage: 20 MG, UNKNOWN
     Route: 065

REACTIONS (5)
  - Exposure during pregnancy [Unknown]
  - Injection site pain [Unknown]
  - Tension [Unknown]
  - Injection site haematoma [Unknown]
  - Skin induration [Unknown]
